FAERS Safety Report 4620011-0 (Version None)
Quarter: 2005Q1

REPORT INFORMATION
  Report Type: 
  Country: None (occurrence: None)
  Receive Date: 20050324
  Receipt Date: 20050308
  Transmission Date: 20050727
  Serious: Yes (Other)
  Sender: FDA-Public Use
  Company Number: 2005BL001728

PATIENT
  Age: 67 Year
  Sex: Male
  Weight: 95 kg

DRUGS (1)
  1. FLOXAL AUGENTROPFEN (OFLOXACIN) [Suspect]
     Indication: CONJUNCTIVITIS
     Dosage: 1 DROP; 5XD; TOPICAL
     Route: 061

REACTIONS (3)
  - DEPRESSION [None]
  - SUICIDAL IDEATION [None]
  - THERAPY NON-RESPONDER [None]
